FAERS Safety Report 12634830 (Version 1)
Quarter: 2016Q3

REPORT INFORMATION
  Report Type: Spontaneous
  Country: US (occurrence: US)
  Receive Date: 20160808
  Receipt Date: 20160808
  Transmission Date: 20161109
  Serious: No
  Sender: FDA-Public Use
  Company Number: US-WARNER CHILCOTT, LLC-1055928

PATIENT
  Sex: Male
  Weight: 83.18 kg

DRUGS (2)
  1. DELZICOL [Suspect]
     Active Substance: MESALAMINE
     Indication: COLITIS
     Route: 048
     Dates: start: 201605
  2. RAPAFLO [Concomitant]
     Active Substance: SILODOSIN

REACTIONS (1)
  - Back pain [Not Recovered/Not Resolved]
